FAERS Safety Report 5358465-7 (Version None)
Quarter: 2007Q2

REPORT INFORMATION
  Report Type: 
  Country: None (occurrence: None)
  Receive Date: 20070601
  Receipt Date: 20070316
  Transmission Date: 20071010
  Serious: No
  Sender: FDA-Public Use
  Company Number: PHEH2007US03285

PATIENT
  Age: 80 Year
  Sex: Female

DRUGS (2)
  1. ENABLEX [Suspect]
     Indication: POLLAKIURIA
     Dosage: 15 MG, QD, ORAL
     Route: 048
     Dates: start: 20070312
  2. ANXIOLYTICS (NO INGREDIENTS/SUBSTANCES) [Suspect]

REACTIONS (3)
  - CONSTIPATION [None]
  - DYSURIA [None]
  - POLLAKIURIA [None]
